FAERS Safety Report 16033491 (Version 1)
Quarter: 2019Q1

REPORT INFORMATION
  Report Type: Spontaneous
  Country: US (occurrence: US)
  Receive Date: 20190305
  Receipt Date: 20190305
  Transmission Date: 20190418
  Serious: No
  Sender: FDA-Public Use
  Company Number: US-PRINSTON PHARMACEUTICAL INC.-2018PRN00888

PATIENT
  Sex: Male

DRUGS (1)
  1. VALSARTAN AND HYDROCHLOROTHIAZIDE [Suspect]
     Active Substance: HYDROCHLOROTHIAZIDE\VALSARTAN
     Indication: BLOOD PRESSURE ABNORMAL
     Dosage: 320 MG, 1X/DAY
     Route: 048
     Dates: start: 20100101

REACTIONS (3)
  - Rash papular [Not Recovered/Not Resolved]
  - Alopecia [Not Recovered/Not Resolved]
  - Nail growth abnormal [Not Recovered/Not Resolved]
